FAERS Safety Report 12824751 (Version 1)
Quarter: 2016Q4

REPORT INFORMATION
  Report Type: Report from Study
  Country: US (occurrence: US)
  Receive Date: 20161006
  Receipt Date: 20161006
  Transmission Date: 20170207
  Serious: No
  Sender: FDA-Public Use
  Company Number: US-AMGEN-USASL2016128041

PATIENT
  Age: 79 Year
  Sex: Female

DRUGS (1)
  1. PROLIA [Suspect]
     Active Substance: DENOSUMAB
     Indication: OSTEOPOROSIS
     Dosage: UNK UNK, UNK
     Route: 065
     Dates: start: 201604

REACTIONS (10)
  - Jaw disorder [Unknown]
  - Arthralgia [Unknown]
  - Musculoskeletal discomfort [Unknown]
  - Muscle spasms [Unknown]
  - Foot deformity [Unknown]
  - Bone pain [Unknown]
  - Groin pain [Not Recovered/Not Resolved]
  - Pain in extremity [Unknown]
  - Tooth disorder [Unknown]
  - Myalgia [Unknown]

NARRATIVE: CASE EVENT DATE: 2016
